FAERS Safety Report 15608731 (Version 2)
Quarter: 2018Q4

REPORT INFORMATION
  Report Type: Report from Study
  Country: US (occurrence: US)
  Receive Date: 20181112
  Receipt Date: 20181119
  Transmission Date: 20190205
  Serious: No
  Sender: FDA-Public Use
  Company Number: US-SA-2018SA307162

PATIENT
  Age: 36 Year
  Sex: Female

DRUGS (1)
  1. TERIFLUNOMIDE. [Suspect]
     Active Substance: TERIFLUNOMIDE
     Indication: MULTIPLE SCLEROSIS
     Dosage: 14 MG, QD
     Route: 048
     Dates: start: 20181007

REACTIONS (7)
  - Nausea [Not Recovered/Not Resolved]
  - Intervertebral disc protrusion [Unknown]
  - Patellofemoral pain syndrome [Unknown]
  - Depression [Unknown]
  - Decreased interest [Unknown]
  - Gait disturbance [Unknown]
  - Diarrhoea [Not Recovered/Not Resolved]

NARRATIVE: CASE EVENT DATE: 201810
